FAERS Safety Report 7136846-9 (Version None)
Quarter: 2010Q4

REPORT INFORMATION
  Report Type: 
  Country: None (occurrence: None)
  Receive Date: 20101119
  Receipt Date: 20101029
  Transmission Date: 20110411
  Serious: Yes (Other)
  Sender: FDA-Public Use
  Company Number: 004034

PATIENT
  Sex: Female
  Weight: 63 kg

DRUGS (6)
  1. CERTOLIZUMAB PEGOL (CERTOLIZUMAB PEGOL) [Suspect]
     Indication: CROHN'S DISEASE
     Dosage: (400 MG 1X/MONTH) ; (200 MG 1X/2 WEEKS)
     Dates: start: 20080923, end: 20081219
  2. CERTOLIZUMAB PEGOL (CERTOLIZUMAB PEGOL) [Suspect]
     Indication: CROHN'S DISEASE
     Dosage: (400 MG 1X/MONTH) ; (200 MG 1X/2 WEEKS)
     Dates: start: 20081219
  3. LOPERAMIDE [Concomitant]
  4. PURINETHOL [Concomitant]
  5. PREDNISOLONE [Concomitant]
  6. CALCICHEW /00108001/ [Concomitant]

REACTIONS (5)
  - CAESAREAN SECTION [None]
  - DRUG EXPOSURE DURING PREGNANCY [None]
  - PREGNANCY [None]
  - STAPHYLOCOCCAL INFECTION [None]
  - WOUND INFECTION [None]
